FAERS Safety Report 15720530 (Version 1)
Quarter: 2018Q4

REPORT INFORMATION
  Report Type: Report from Study
  Country: US (occurrence: US)
  Receive Date: 20181213
  Receipt Date: 20181213
  Transmission Date: 20190205
  Serious: Yes (Hospitalization)
  Sender: FDA-Public Use
  Company Number: US-GILEAD-2018-0379962

PATIENT
  Age: 17 Year
  Sex: Female

DRUGS (16)
  1. FLOVENT [Concomitant]
     Active Substance: FLUTICASONE PROPIONATE
     Dosage: 110MCG
  2. MONTELUKAST [Concomitant]
     Active Substance: MONTELUKAST SODIUM
     Dosage: 10MG
  3. AZTREONAM LYSINE [Suspect]
     Active Substance: AZTREONAM LYSINE
     Indication: PSEUDOMONAS INFECTION
  4. CYPROHEPTADIN [Concomitant]
     Dosage: 4MG
  5. FLUTICASONE. [Concomitant]
     Active Substance: FLUTICASONE
     Dosage: 50MCG
  6. MEPHYTON [Concomitant]
     Active Substance: PHYTONADIONE
     Dosage: 5MG
  7. PROVENTIL [SALBUTAMOL] [Concomitant]
  8. BETHKIS [Suspect]
     Active Substance: TOBRAMYCIN
     Indication: CYSTIC FIBROSIS
     Dosage: UNK
     Route: 065
     Dates: start: 20151106
  9. AZTREONAM LYSINE [Suspect]
     Active Substance: AZTREONAM LYSINE
     Indication: CYSTIC FIBROSIS
     Dosage: 1 ML, TID, 28 DAYS ON AND 28 DAYS OFF
     Route: 055
     Dates: start: 20170427
  10. CETRIZINE [Concomitant]
     Active Substance: CETIRIZINE HYDROCHLORIDE
     Dosage: 10MG
  11. HYPERSAL [Concomitant]
     Dosage: 7%
  12. VITAMIN D [Concomitant]
     Active Substance: CHOLECALCIFEROL
     Dosage: 50000UNIT
  13. DEKASOFT [Concomitant]
  14. RANITIDINE. [Concomitant]
     Active Substance: RANITIDINE
     Dosage: 150MG
  15. OMEPRAZOLE. [Concomitant]
     Active Substance: OMEPRAZOLE
     Dosage: 20MG AND 40MG
  16. ZENPEP [Concomitant]
     Active Substance: PANCRELIPASE AMYLASE\PANCRELIPASE LIPASE\PANCRELIPASE PROTEASE
     Dosage: 25000

REACTIONS (1)
  - Viral sinusitis [Not Recovered/Not Resolved]
